FAERS Safety Report 9758681 (Version 1)
Quarter: 2013Q4

REPORT INFORMATION
  Report Type: Spontaneous
  Country: US (occurrence: None)
  Receive Date: 20131216
  Receipt Date: 20131216
  Transmission Date: 20140711
  Serious: Yes (Hospitalization, Other)
  Sender: FDA-Public Use
  Company Number: RB-51908-2013

PATIENT
  Sex: Male

DRUGS (2)
  1. SUBOXONE 8 MG [Suspect]
     Indication: DRUG DEPENDENCE
     Dosage: (8 MG SUBLINGUAL)
  2. SUBOXONE 8 MG [Suspect]
     Indication: DRUG DEPENDENCE
     Dosage: (SUBOXONE FILM; UNKNOWN DOSAGE WHILE WEANING SELF SUBLINGUAL)

REACTIONS (3)
  - Underdose [None]
  - Wrong technique in drug usage process [None]
  - Drug withdrawal syndrome [None]
